FAERS Safety Report 9940903 (Version 2)
Quarter: 2014Q1

REPORT INFORMATION
  Report Type: Spontaneous
  Country: US (occurrence: US)
  Receive Date: 20140303
  Receipt Date: 20140303
  Transmission Date: 20141002
  Serious: Yes (Other)
  Sender: FDA-Public Use
  Company Number: US-JNJFOC-20140105196

PATIENT
  Age: 40 Year
  Sex: Female
  Weight: 113.4 kg

DRUGS (5)
  1. REMICADE [Suspect]
     Indication: PSORIASIS
     Dosage: THE START DATE OF THE REMICADE(INFLIXIMAB) IS 2013(DATE  AND MONTH UNSPECIFIED)
     Route: 042
     Dates: start: 201308, end: 20131206
  2. ATENOLOL [Concomitant]
     Route: 065
  3. HYDROCHLOROTHIAZIDE [Concomitant]
     Route: 065
  4. VOLTAREN [Concomitant]
     Route: 065
  5. BETAMETHASONE DIPROPIONATE [Concomitant]
     Route: 065

REACTIONS (4)
  - Arthralgia [Not Recovered/Not Resolved]
  - Joint swelling [Not Recovered/Not Resolved]
  - Bedridden [Not Recovered/Not Resolved]
  - Antinuclear antibody increased [Not Recovered/Not Resolved]
